FAERS Safety Report 10502724 (Version 1)
Quarter: 2014Q4

REPORT INFORMATION
  Report Type: Spontaneous
  Country: US (occurrence: US)
  Receive Date: 20141007
  Receipt Date: 20141007
  Transmission Date: 20150528
  Serious: Yes (Life-Threatening, Other)
  Sender: FDA-Public Use
  Company Number: US-BAYER-2014-146782

PATIENT
  Sex: Female

DRUGS (1)
  1. MIRENA [Suspect]
     Active Substance: LEVONORGESTREL
     Dosage: 20 MCG/24HR, CONT
     Route: 015
     Dates: start: 201310

REACTIONS (13)
  - Acute respiratory failure [None]
  - Encephalopathy [None]
  - Dysphonia [None]
  - Anhedonia [None]
  - Acute kidney injury [None]
  - Toxic shock syndrome [None]
  - Aphasia [None]
  - Injury [None]
  - Septic shock [None]
  - Pelvic inflammatory disease [None]
  - Abdominal pain lower [None]
  - Anxiety [None]
  - Emotional distress [None]

NARRATIVE: CASE EVENT DATE: 201311
